FAERS Safety Report 9664357 (Version 1)
Quarter: 2013Q4

REPORT INFORMATION
  Report Type: Spontaneous
  Country: CA (occurrence: CA)
  Receive Date: 20131101
  Receipt Date: 20131101
  Transmission Date: 20140711
  Serious: Yes (Hospitalization, Other)
  Sender: FDA-Public Use
  Company Number: CA-ACTELION-A-NJ2013-90299

PATIENT
  Age: 14 Year
  Sex: Male

DRUGS (2)
  1. ZAVESCA [Suspect]
     Indication: GAUCHER^S DISEASE
     Dosage: 400 MG, UNK
     Route: 048
     Dates: end: 201308
  2. CEREZYME [Concomitant]
     Dosage: UNK

REACTIONS (2)
  - Malnutrition [Unknown]
  - Diarrhoea [Unknown]
